FAERS Safety Report 9759578 (Version 1)
Quarter: 2013Q4

REPORT INFORMATION
  Report Type: Spontaneous
  Country: US (occurrence: US)
  Receive Date: 20131216
  Receipt Date: 20131216
  Transmission Date: 20140711
  Serious: No
  Sender: FDA-Public Use
  Company Number: US-GILEAD-2010-0028053

PATIENT
  Age: 65 Year
  Sex: Female
  Weight: 98.6 kg

DRUGS (8)
  1. LETAIRIS [Suspect]
     Indication: PULMONARY ARTERIAL HYPERTENSION
     Route: 048
     Dates: start: 20091229, end: 20100301
  2. WARFARIN [Concomitant]
  3. DIOVAN HCT [Concomitant]
  4. VERAPAMIL [Concomitant]
  5. SIMVASTATIN [Concomitant]
  6. DUONEB [Concomitant]
  7. VENTOLIN HFA [Concomitant]
  8. METFORMIN [Concomitant]

REACTIONS (3)
  - Dyspnoea [Unknown]
  - Local swelling [Unknown]
  - Palpitations [Unknown]
